FAERS Safety Report 19005991 (Version 1)
Quarter: 2021Q1

REPORT INFORMATION
  Report Type: Spontaneous
  Country: DE (occurrence: DE)
  Receive Date: 20210314
  Receipt Date: 20210314
  Transmission Date: 20210420
  Serious: Yes (Hospitalization)
  Sender: FDA-Public Use
  Company Number: DE-JNJFOC-20210315811

PATIENT
  Age: 56 Year
  Sex: Female
  Weight: 83 kg

DRUGS (4)
  1. TREMFYA [Suspect]
     Active Substance: GUSELKUMAB
     Indication: PSORIASIS
     Route: 065
     Dates: start: 202009, end: 202101
  2. TREMFYA [Suspect]
     Active Substance: GUSELKUMAB
  3. CANDESARTAN. [Concomitant]
     Active Substance: CANDESARTAN
     Indication: PRODUCT USED FOR UNKNOWN INDICATION
  4. TREMFYA [Suspect]
     Active Substance: GUSELKUMAB

REACTIONS (2)
  - Peripheral vascular disorder [Unknown]
  - Local reaction [Unknown]

NARRATIVE: CASE EVENT DATE: 20210106
